FAERS Safety Report 6562666-X (Version None)
Quarter: 2010Q1

REPORT INFORMATION
  Report Type: 
  Country: None (occurrence: None)
  Receive Date: 20100130
  Receipt Date: 20091112
  Transmission Date: 20100710
  Serious: No
  Sender: FDA-Public Use
  Company Number: US-ABBOTT-09P-163-0609193-00

PATIENT
  Sex: Female
  Weight: 68.1 kg

DRUGS (2)
  1. HUMIRA [Suspect]
     Indication: PSORIASIS
     Dates: start: 20080601
  2. HUMIRA [Suspect]
     Indication: PSORIATIC ARTHROPATHY

REACTIONS (6)
  - ABDOMINAL PAIN [None]
  - BACK PAIN [None]
  - CHEST DISCOMFORT [None]
  - GALLBLADDER DISORDER [None]
  - MUSCULOSKELETAL PAIN [None]
  - NAUSEA [None]
